FAERS Safety Report 23554984 (Version 7)
Quarter: 2024Q4

REPORT INFORMATION
  Report Type: Spontaneous
  Country: US (occurrence: US)
  Receive Date: 20240222
  Receipt Date: 20241126
  Transmission Date: 20250115
  Serious: No
  Sender: BRISTOL-MYERS SQUIBB COMPANY
  Company Number: US-BRISTOL-MYERS SQUIBB COMPANY-2024-029024

PATIENT
  Age: 69 Year
  Sex: Female

DRUGS (4)
  1. REVLIMID [Suspect]
     Active Substance: LENALIDOMIDE
     Indication: B-cell lymphoma
     Route: 048
  2. REVLIMID [Suspect]
     Active Substance: LENALIDOMIDE
     Route: 048
  3. REVLIMID [Suspect]
     Active Substance: LENALIDOMIDE
     Dosage: FREQUENCY:21
     Route: 048
     Dates: start: 20231128
  4. LENALIDOMIDE [Suspect]
     Active Substance: LENALIDOMIDE
     Indication: B-cell lymphoma
     Dosage: FREQUENCY:21
     Dates: start: 20231128

REACTIONS (11)
  - Bone pain [Unknown]
  - Memory impairment [Unknown]
  - Off label use [Unknown]
  - Epistaxis [Unknown]
  - Pruritus [Unknown]
  - Urinary tract infection [Unknown]
  - Abdominal pain upper [Recovering/Resolving]
  - Bacterial test [Recovering/Resolving]
  - Chromaturia [Recovering/Resolving]
  - Influenza [Unknown]
  - Muscle spasms [Unknown]
